FAERS Safety Report 11708336 (Version 3)
Quarter: 2016Q1

REPORT INFORMATION
  Report Type: Report from Study
  Country: BR (occurrence: BR)
  Receive Date: 20151107
  Receipt Date: 20160118
  Transmission Date: 20160525
  Serious: Yes (Life-Threatening, Other)
  Sender: FDA-Public Use
  Company Number: BR-BRISTOL-MYERS SQUIBB COMPANY-BMS-2015-075218

PATIENT
  Age: 23 Year
  Sex: Female
  Weight: 95 kg

DRUGS (2)
  1. EFAVIRENZ [Suspect]
     Active Substance: EFAVIRENZ
     Indication: HIV INFECTION
     Dosage: 600 MG, QD
     Route: 048
     Dates: start: 20150828
  2. LAMIVUDINE AND ZIDOVUDINE [Suspect]
     Active Substance: LAMIVUDINE\ZIDOVUDINE
     Indication: HIV INFECTION
     Dosage: 450 MG, Q12H
     Route: 048
     Dates: start: 20150828

REACTIONS (3)
  - Uterine haemorrhage [Recovered/Resolved]
  - Maternal exposure during pregnancy [Unknown]
  - Hypotension [Unknown]

NARRATIVE: CASE EVENT DATE: 20151026
